FAERS Safety Report 6136864-3 (Version None)
Quarter: 2009Q1

REPORT INFORMATION
  Report Type: 
  Country: None (occurrence: None)
  Receive Date: 20090330
  Receipt Date: 20090317
  Transmission Date: 20090719
  Serious: Yes (Hospitalization, Other)
  Sender: FDA-Public Use
  Company Number: ES-ELI_LILLY_AND_COMPANY-ES200903004445

PATIENT
  Age: 65 Year
  Sex: Female

DRUGS (1)
  1. FORTEO [Suspect]
     Indication: OSTEOPOROSIS
     Dosage: 20 UG, UNKNOWN
     Route: 058
     Dates: start: 20081201

REACTIONS (8)
  - ANAL FISTULA [None]
  - HAEMORRHOIDS [None]
  - HERPES VIRUS INFECTION [None]
  - MICTURITION URGENCY [None]
  - NAUSEA [None]
  - PALPITATIONS [None]
  - SYNCOPE [None]
  - VOMITING [None]
